FAERS Safety Report 14011804 (Version 1)
Quarter: 2017Q3

REPORT INFORMATION
  Report Type: Other
  Country: US (occurrence: US)
  Receive Date: 20170926
  Receipt Date: 20170926
  Transmission Date: 20171128
  Serious: Yes (Hospitalization, Other)
  Sender: FDA-Public Use
  Company Number: US-VELOXIS PHARMACEUTICALS-2027704

PATIENT
  Age: 21 Year
  Sex: Male

DRUGS (7)
  1. ABACAVIR SULFATE. [Suspect]
     Active Substance: ABACAVIR SULFATE
  2. DOLUTEGRAVIR [Suspect]
     Active Substance: DOLUTEGRAVIR
  3. AZATHIOPRINE. [Suspect]
     Active Substance: AZATHIOPRINE
  4. ENVARSUS XR [Suspect]
     Active Substance: TACROLIMUS
     Indication: RENAL TRANSPLANT
  5. ANTITHYMOCYTE IMMUNOGLOBULIN [Suspect]
     Active Substance: THYMOCYTE IMMUNE GLOBULIN NOS
  6. RILPIVIRINE [Suspect]
     Active Substance: RILPIVIRINE
  7. MYCOPHENOLATE MOFETIL. [Suspect]
     Active Substance: MYCOPHENOLATE MOFETIL

REACTIONS (8)
  - Hydronephrosis [Unknown]
  - Aspergillus infection [Unknown]
  - Cytomegalovirus test positive [Unknown]
  - Blood potassium increased [Unknown]
  - Diarrhoea [Unknown]
  - Leukopenia [Unknown]
  - Transplant rejection [Unknown]
  - Colitis [Unknown]
